FAERS Safety Report 4536207-2 (Version None)
Quarter: 2004Q4

REPORT INFORMATION
  Report Type: 
  Country: None (occurrence: None)
  Receive Date: 20041223
  Receipt Date: 20041214
  Transmission Date: 20050328
  Serious: Yes (Hospitalization, Disabling, Other)
  Sender: FDA-Public Use
  Company Number: GB-GLAXOSMITHKLINE-B0361879A

PATIENT
  Age: 76 Year
  Sex: Male
  Weight: 75.7 kg

DRUGS (3)
  1. SERETIDE [Suspect]
     Indication: ASTHMA
     Dosage: 2PUFF TWICE PER DAY
     Dates: start: 20010101, end: 20041210
  2. ALBUTEROL [Concomitant]
     Indication: ASTHMA
     Route: 065
     Dates: end: 20041203
  3. CO-CODAMOL [Concomitant]
     Indication: PAIN
     Route: 065
     Dates: start: 20041118

REACTIONS (3)
  - ADRENAL INSUFFICIENCY [None]
  - CIRCULATORY COLLAPSE [None]
  - HYPOTENSION [None]
